FAERS Safety Report 4566431-4 (Version None)
Quarter: 2005Q1

REPORT INFORMATION
  Report Type: 
  Country: None (occurrence: None)
  Receive Date: 20050128
  Receipt Date: 20050121
  Transmission Date: 20050727
  Serious: Yes (Disabling)
  Sender: FDA-Public Use
  Company Number: TPA2005A00091

PATIENT
  Age: 56 Year
  Sex: Male
  Weight: 120.2032 kg

DRUGS (8)
  1. ACTOS [Suspect]
     Indication: DIABETES MELLITUS NON-INSULIN-DEPENDENT
     Dosage: 30 MG, 1 IN 1 D, PER ORAL
     Route: 048
     Dates: start: 20030121
  2. METFORMIN HCL [Concomitant]
  3. TOPROL-XL [Concomitant]
  4. FLOMAX [Concomitant]
  5. PROTONIX [Concomitant]
  6. AVAPRO [Concomitant]
  7. DYAZIDE [Concomitant]
  8. ASPIRIN [Concomitant]

REACTIONS (5)
  - BLOOD CHOLESTEROL INCREASED [None]
  - BLOOD URINE PRESENT [None]
  - LOSS OF CONSCIOUSNESS [None]
  - PAIN [None]
  - STRESS [None]
